FAERS Safety Report 21016392 (Version 1)
Quarter: 2022Q2

REPORT INFORMATION
  Report Type: Report from Study
  Country: JP (occurrence: JP)
  Receive Date: 20220628
  Receipt Date: 20220628
  Transmission Date: 20220721
  Serious: Yes (Life-Threatening, Other)
  Sender: FDA-Public Use
  Company Number: JP-ASTELLAS-2022JP003189

PATIENT
  Age: 0 Year
  Sex: Male
  Weight: 1.432 kg

DRUGS (9)
  1. TACROLIMUS [Suspect]
     Active Substance: TACROLIMUS
     Indication: Infertility female
     Dosage: 2 MG/DAY, UNKNOWN FREQ.
     Route: 064
     Dates: start: 201606, end: 20170108
  2. PROGESTERONE [Concomitant]
     Active Substance: PROGESTERONE
     Indication: Product used for unknown indication
     Dosage: UNK UNK, UNKNOWN FREQ.
     Route: 064
     Dates: start: 201606, end: 201608
  3. Flomox [Concomitant]
     Indication: Product used for unknown indication
     Dosage: 300 MG/DAY, UNKNOWN FREQ.
     Route: 064
     Dates: start: 20161108, end: 20161112
  4. MAGNESIUM OXIDE [Concomitant]
     Active Substance: MAGNESIUM OXIDE
     Indication: Product used for unknown indication
     Dosage: 1.5 G/DAY, UNKNOWN FREQ.
     Route: 064
     Dates: start: 20161124, end: 20170109
  5. RITODRINE [Concomitant]
     Active Substance: RITODRINE
     Indication: Premature delivery
     Dosage: UNK UNK, UNKNOWN FREQ.
     Route: 064
     Dates: start: 20161218, end: 20161224
  6. SODIUM FERROUS CITRATE [Concomitant]
     Active Substance: SODIUM FERROUS CITRATE
     Indication: Product used for unknown indication
     Dosage: 100-200 MG/DAY, UNKNOWN FREQ.
     Route: 064
     Dates: start: 20161222, end: 20170105
  7. DEXTROSE\MAGNESIUM SULFATE HEPTAHYDRATE [Concomitant]
     Active Substance: DEXTROSE\MAGNESIUM SULFATE HEPTAHYDRATE
     Indication: Premature delivery
     Dosage: UNK UNK, UNKNOWN FREQ.
     Route: 064
     Dates: start: 20161225, end: 20170109
  8. Rinderon [Concomitant]
     Indication: Product used for unknown indication
     Dosage: 12 MG/DAY, UNKNOWN FREQ.
     Route: 064
     Dates: start: 20170104, end: 20170105
  9. ADALAT [Concomitant]
     Active Substance: NIFEDIPINE
     Indication: Premature delivery
     Dosage: 60 MG/DAY, UNKNOWN FREQ.
     Route: 064
     Dates: start: 20170104, end: 20170109

REACTIONS (7)
  - Neonatal respiratory distress syndrome [Recovered/Resolved]
  - Low birth weight baby [Recovered/Resolved]
  - Premature baby [Unknown]
  - Hyperbilirubinaemia [Unknown]
  - Osteopenia [Unknown]
  - Iron deficiency anaemia [Unknown]
  - Foetal exposure during pregnancy [Unknown]

NARRATIVE: CASE EVENT DATE: 20170109
